FAERS Safety Report 18178216 (Version 1)
Quarter: 2020Q3

REPORT INFORMATION
  Report Type: Spontaneous
  Country: US (occurrence: US)
  Receive Date: 20200821
  Receipt Date: 20200821
  Transmission Date: 20201103
  Serious: No
  Sender: FDA-Public Use
  Company Number: US-009507513-2008USA010835

PATIENT
  Sex: Female

DRUGS (1)
  1. NEXPLANON [Suspect]
     Active Substance: ETONOGESTREL
     Dosage: 1 IMPLANT IN PATIENT^S ARM (UNSPECIFIED)
     Route: 059
     Dates: start: 2019

REACTIONS (1)
  - Complication associated with device [Not Recovered/Not Resolved]
